FAERS Safety Report 12085586 (Version 1)
Quarter: 2016Q1

REPORT INFORMATION
  Report Type: Spontaneous
  Country: US (occurrence: US)
  Receive Date: 20160217
  Receipt Date: 20160217
  Transmission Date: 20160526
  Serious: Yes (Hospitalization, Other)
  Sender: FDA-Public Use
  Company Number: US-GLAXOSMITHKLINE-A0869293A

PATIENT
  Age: 62 Year
  Sex: Female

DRUGS (1)
  1. AVANDIA [Suspect]
     Active Substance: ROSIGLITAZONE MALEATE
     Indication: GLUCOSE TOLERANCE IMPAIRED
     Route: 048
     Dates: start: 20010401, end: 20060901

REACTIONS (4)
  - Cardiac failure congestive [Unknown]
  - Myocardial infarction [Not Recovered/Not Resolved]
  - Amnesia [Unknown]
  - Cardiac disorder [Unknown]

NARRATIVE: CASE EVENT DATE: 20060901
